FAERS Safety Report 23088715 (Version 1)
Quarter: 2023Q4

REPORT INFORMATION
  Report Type: Report from Study
  Country: CN (occurrence: CN)
  Receive Date: 20231020
  Receipt Date: 20231020
  Transmission Date: 20240109
  Serious: Yes (Life-Threatening, Hospitalization)
  Sender: FDA-Public Use
  Company Number: CN-BEIGENE-BGN-2023-007804

PATIENT
  Age: 48 Year
  Sex: Male

DRUGS (16)
  1. DOCETAXEL [Suspect]
     Active Substance: DOCETAXEL
     Indication: Lung adenocarcinoma
     Dosage: 110 MG
     Route: 042
     Dates: start: 20230402
  2. DOCETAXEL [Suspect]
     Active Substance: DOCETAXEL
     Dosage: 110 MG, CYCLE 2
     Route: 042
     Dates: start: 20230518
  3. DOCETAXEL [Suspect]
     Active Substance: DOCETAXEL
     Dosage: 110 MG, CYCLE 3
     Route: 042
     Dates: start: 20230608
  4. DOCETAXEL [Suspect]
     Active Substance: DOCETAXEL
     Dosage: 110 MG, CYCLE 4
     Route: 042
     Dates: start: 20230629
  5. DOCETAXEL [Suspect]
     Active Substance: DOCETAXEL
     Dosage: 110 MG
     Route: 042
  6. SITRAVATINIB [Suspect]
     Active Substance: SITRAVATINIB
     Dosage: 36 MG, QD
     Route: 048
     Dates: start: 20230809, end: 20230903
  7. SITRAVATINIB [Suspect]
     Active Substance: SITRAVATINIB
     Dosage: 50 MG, QD
     Route: 048
     Dates: start: 20230720, end: 20230729
  8. SITRAVATINIB [Suspect]
     Active Substance: SITRAVATINIB
     Indication: Lung adenocarcinoma
     Dosage: 70 MG
     Route: 048
     Dates: start: 20230402
  9. SITRAVATINIB [Suspect]
     Active Substance: SITRAVATINIB
     Dosage: 70 MG,  CYCLE 2
     Route: 048
     Dates: start: 20230518
  10. SITRAVATINIB [Suspect]
     Active Substance: SITRAVATINIB
     Dosage: 70 MG,  CYCLE 3
     Route: 048
     Dates: start: 20230608
  11. SITRAVATINIB [Suspect]
     Active Substance: SITRAVATINIB
     Dosage: 70 MG,  CYCLE 4
     Route: 048
     Dates: start: 20230629
  12. TISLELIZUMAB [Suspect]
     Active Substance: TISLELIZUMAB
     Indication: Lung adenocarcinoma
     Dosage: 200 MG
     Route: 042
     Dates: start: 20230402
  13. TISLELIZUMAB [Suspect]
     Active Substance: TISLELIZUMAB
     Dosage: 200 MG
     Route: 042
     Dates: start: 20230720
  14. TISLELIZUMAB [Suspect]
     Active Substance: TISLELIZUMAB
     Dosage: 200 MG, CYCLE 2
     Route: 042
     Dates: start: 20230518
  15. TISLELIZUMAB [Suspect]
     Active Substance: TISLELIZUMAB
     Dosage: 200 MG, CYCLE 3
     Route: 042
     Dates: start: 20230608
  16. TISLELIZUMAB [Suspect]
     Active Substance: TISLELIZUMAB
     Dosage: 200 MG, CYCLE 4
     Route: 042
     Dates: start: 20230629

REACTIONS (2)
  - Pneumonia [Recovering/Resolving]
  - Immune-mediated lung disease [Recovering/Resolving]

NARRATIVE: CASE EVENT DATE: 20230728
